FAERS Safety Report 5407652-8 (Version None)
Quarter: 2007Q3

REPORT INFORMATION
  Report Type: 
  Country: None (occurrence: None)
  Receive Date: 20070803
  Receipt Date: 20070724
  Transmission Date: 20080115
  Serious: Yes (Hospitalization)
  Sender: FDA-Public Use
  Company Number: TPG2007A00434

PATIENT
  Age: 71 Year
  Sex: Male

DRUGS (7)
  1. ACTOS [Suspect]
     Indication: DIABETES MELLITUS
     Dosage: 45 MG PER ORAL
     Route: 048
     Dates: start: 20060701, end: 20070501
  2. ACETYLSALICYLIC ACID SRT [Concomitant]
  3. ALLOPURINOL [Concomitant]
  4. VALSARTAN [Concomitant]
  5. TOREM (TORASEMIDE) [Concomitant]
  6. METOPROLOL TARTRATE [Concomitant]
  7. FORADIL P DA (FORMOTEROL FUMARATE) [Concomitant]

REACTIONS (1)
  - DIARRHOEA [None]
